FAERS Safety Report 5137094-4 (Version None)
Quarter: 2006Q4

REPORT INFORMATION
  Report Type: 
  Country: None (occurrence: None)
  Receive Date: 20061030
  Receipt Date: 20061016
  Transmission Date: 20070319
  Serious: Yes (Disabling, Other)
  Sender: FDA-Public Use
  Company Number: PHBS2006IT16248

PATIENT
  Age: 52 Year
  Sex: Female

DRUGS (1)
  1. ZOMETA [Suspect]
     Indication: BREAST CANCER
     Dosage: 4 MG, EVERY 1 MONTH
     Route: 042
     Dates: start: 19980301, end: 20050701

REACTIONS (2)
  - OSTEITIS [None]
  - STREPTOCOCCAL INFECTION [None]
